FAERS Safety Report 7166812-9 (Version None)
Quarter: 2010Q4

REPORT INFORMATION
  Report Type: 
  Country: None (occurrence: None)
  Receive Date: 20101216
  Receipt Date: 20101209
  Transmission Date: 20110411
  Serious: Yes (Other)
  Sender: FDA-Public Use
  Company Number: US-AMGEN-USASP2010008538

PATIENT

DRUGS (2)
  1. EPOGEN [Suspect]
     Indication: RENAL FAILURE CHRONIC
     Dosage: 30000 UNK, UNK
  2. PROCRIT [Suspect]
     Dosage: 30000 IU, 3 TIMES/WK

REACTIONS (1)
  - APLASIA PURE RED CELL [None]
